FAERS Safety Report 18241804 (Version 1)
Quarter: 2020Q3

REPORT INFORMATION
  Report Type: Spontaneous
  Country: US (occurrence: US)
  Receive Date: 20200907
  Receipt Date: 20200907
  Transmission Date: 20201103
  Serious: Yes (Hospitalization)
  Sender: FDA-Public Use
  Company Number: None

PATIENT
  Age: 41 Year
  Sex: Female
  Weight: 86.7 kg

DRUGS (1)
  1. BRENTUXIMAB VEDOTIN [Suspect]
     Active Substance: BRENTUXIMAB VEDOTIN
     Route: 042
     Dates: start: 20200814, end: 20200903

REACTIONS (5)
  - Foaming at mouth [None]
  - Loss of consciousness [None]
  - Palpitations [None]
  - Eye movement disorder [None]
  - Decorticate posture [None]

NARRATIVE: CASE EVENT DATE: 20200903
